FAERS Safety Report 7803871 (Version 4)
Quarter: 2013Q1

REPORT INFORMATION
  Report Type: Spontaneous
  Country: US (occurrence: US)
  Receive Date: 20110208
  Receipt Date: 20130326
  Transmission Date: 20140127
  Serious: Yes (Other)
  Sender: FDA-Public Use
  Company Number: US-ROCHE-757983

PATIENT
  Age: 18 Year
  Sex: Male
  Weight: 63.5 kg

DRUGS (1)
  1. ACCUTANE [Suspect]
     Indication: ACNE
     Route: 065
     Dates: start: 20000825, end: 20010508

REACTIONS (11)
  - Irritable bowel syndrome [Unknown]
  - Anxiety [Unknown]
  - Colitis ulcerative [Unknown]
  - Crohn^s disease [Unknown]
  - Inflammatory bowel disease [Unknown]
  - Intestinal obstruction [Unknown]
  - Acne [Unknown]
  - Dry eye [Unknown]
  - Lip dry [Unknown]
  - Dry skin [Unknown]
  - Blood triglycerides increased [Unknown]
